FAERS Safety Report 4884553-5 (Version None)
Quarter: 2006Q1

REPORT INFORMATION
  Report Type: 
  Country: None (occurrence: None)
  Receive Date: 20060117
  Receipt Date: 20060105
  Transmission Date: 20060701
  Serious: Yes (Death, Other)
  Sender: FDA-Public Use
  Company Number: USA-2003-0009419

PATIENT
  Age: 47 Year
  Sex: Male

DRUGS (8)
  1. OXYCONTIN TABLETS (OXYCODONE HYDROCLORIDE) CR TABLET [Suspect]
     Indication: PAIN
     Dosage: SEE IMAGE
     Route: 048
     Dates: start: 20000701, end: 20010601
  2. EFFEXOR [Suspect]
     Dosage: 75 MG, HS, ORAL
     Route: 048
  3. XANAX [Suspect]
     Dosage: ORAL
     Route: 048
  4. MEPROBAMATE [Suspect]
     Dosage: ORAL
     Route: 048
  5. SOMA [Suspect]
     Dosage: 1 TABLET, QID, ORAL
     Route: 048
  6. COCAINE(COCAINE) [Suspect]
  7. COUMADIN [Concomitant]
  8. OXYIR TABLET [Concomitant]

REACTIONS (32)
  - ABDOMINAL PAIN [None]
  - APNOEA [None]
  - APPLICATION SITE PAIN [None]
  - ARTERIOSCLEROSIS [None]
  - BACK PAIN [None]
  - CARDIAC ARREST [None]
  - CORONARY ARTERY OCCLUSION [None]
  - DEPRESSED LEVEL OF CONSCIOUSNESS [None]
  - DEPRESSION [None]
  - DIARRHOEA [None]
  - DRUG DEPENDENCE [None]
  - DRUG INTERACTION POTENTIATION [None]
  - DRUG TOXICITY [None]
  - DRUG WITHDRAWAL SYNDROME [None]
  - HEADACHE [None]
  - HYPERHIDROSIS [None]
  - INADEQUATE ANALGESIA [None]
  - INSOMNIA [None]
  - LOSS OF CONSCIOUSNESS [None]
  - MUSCLE SPASMS [None]
  - MUSCULOSKELETAL CHEST PAIN [None]
  - NAUSEA [None]
  - NERVOUSNESS [None]
  - POLYSUBSTANCE ABUSE [None]
  - SLEEP DISORDER [None]
  - SNORING [None]
  - SOMNOLENCE [None]
  - THROMBOSIS [None]
  - TREMOR [None]
  - VENTRICULAR ARRHYTHMIA [None]
  - VENTRICULAR FIBRILLATION [None]
  - WEIGHT DECREASED [None]
